FAERS Safety Report 11209665 (Version 1)
Quarter: 2015Q2

REPORT INFORMATION
  Report Type: Spontaneous
  Country: CA (occurrence: CA)
  Receive Date: 20150622
  Receipt Date: 20150622
  Transmission Date: 20150821
  Serious: Yes (Other)
  Sender: FDA-Public Use
  Company Number: PHHY2015CA069529

PATIENT
  Age: 37 Year
  Sex: Female

DRUGS (4)
  1. BUPIVACAIN + FENTANYL COMP [Suspect]
     Active Substance: BUPIVACAINE HYDROCHLORIDE\FENTANYL CITRATE
     Indication: EPIDURAL ANALGESIA
     Dosage: 0.1%/2MCG/ML WAS STARTED AT 10CC/HOUR
     Route: 041
  2. OXYTOCIN. [Suspect]
     Active Substance: OXYTOCIN
     Indication: INDUCED LABOUR
  3. BUPIVACAIN [Suspect]
     Active Substance: BUPIVACAINE
     Indication: EPIDURAL ANALGESIA
     Dosage: 14 ML, OF (OF 0.125%)
     Route: 065
  4. LIDOCAINE. [Suspect]
     Active Substance: LIDOCAINE
     Indication: EPIDURAL ANALGESIA
     Route: 065

REACTIONS (5)
  - Eyelid ptosis [Unknown]
  - Horner^s syndrome [Recovered/Resolved]
  - Enophthalmos [Unknown]
  - Miosis [Unknown]
  - Conjunctival hyperaemia [Unknown]
